FAERS Safety Report 5031270-7 (Version None)
Quarter: 2006Q2

REPORT INFORMATION
  Report Type: 
  Country: None (occurrence: None)
  Receive Date: 20060619
  Receipt Date: 20060619
  Transmission Date: 20061013
  Serious: No
  Sender: FDA-Public Use
  Company Number: None

PATIENT
  Age: 73 Year
  Sex: Male
  Weight: 72.5755 kg

DRUGS (1)
  1. LEVAQUIN [Suspect]
     Indication: SINUSITIS
     Dosage: 500 MG ONCE PER DAY PO
     Route: 048
     Dates: start: 20060109, end: 20060113

REACTIONS (8)
  - EXERCISE TOLERANCE DECREASED [None]
  - MUSCLE SPASMS [None]
  - MUSCULOSKELETAL STIFFNESS [None]
  - MYALGIA [None]
  - NEUROPATHY PERIPHERAL [None]
  - PRURITUS [None]
  - RASH [None]
  - TENDONITIS [None]
